FAERS Safety Report 15715510 (Version 1)
Quarter: 2018Q4

REPORT INFORMATION
  Report Type: Spontaneous
  Country: DE (occurrence: DE)
  Receive Date: 20181212
  Receipt Date: 20181212
  Transmission Date: 20190205
  Serious: Yes (Other)
  Sender: FDA-Public Use
  Company Number: DE-009507513-1812DEU003236

PATIENT
  Sex: Male
  Weight: 102 kg

DRUGS (13)
  1. VALSACOR [Concomitant]
     Active Substance: VALSARTAN
     Dosage: HALF A TABLET IN THE MORNING
     Route: 048
  2. ESCITALOPRAM [Concomitant]
     Active Substance: ESCITALOPRAM OXALATE
     Dosage: ONE TABLET IN THE MORNING
     Route: 048
  3. PREDNISOLON [Concomitant]
     Active Substance: PREDNISOLONE
     Dosage: ONE TABLET IN THE MORNING
     Route: 048
  4. L-THYROXIN [Concomitant]
     Active Substance: LEVOTHYROXINE SODIUM
     Dosage: HALF A TABLET IN THE MORNING
     Route: 048
  5. XARELTO [Concomitant]
     Active Substance: RIVAROXABAN
     Dosage: ONE TABLET IN THE MORNING
     Route: 048
  6. RELVAR ELLIPTA [Concomitant]
     Active Substance: FLUTICASONE FUROATE\VILANTEROL TRIFENATATE
  7. NEXIUM MUPS [Concomitant]
     Active Substance: ESOMEPRAZOLE MAGNESIUM
     Dosage: ONE TABLET IN THE MORNING
     Route: 048
  8. SPIRIVA [Concomitant]
     Active Substance: TIOTROPIUM BROMIDE MONOHYDRATE
  9. TIOBLIS 10 MG/40 MG [Suspect]
     Active Substance: ATORVASTATIN CALCIUM\EZETIMIBE
     Dosage: ONCE DAILY IN THE EVENING
     Route: 048
  10. BELOC ZOK MITE [Concomitant]
     Active Substance: METOPROLOL SUCCINATE
     Dosage: 2 DOSAGE FORM, QD
     Route: 048
  11. FORXIGA [Concomitant]
     Active Substance: DAPAGLIFLOZIN
     Dosage: ONE TABLET IN THE MORNING
     Route: 048
  12. TORSEMIDE. [Concomitant]
     Active Substance: TORSEMIDE
     Dosage: ONE TABLET IN THE MORNING
     Route: 048
  13. METFORMIN [Concomitant]
     Active Substance: METFORMIN HYDROCHLORIDE
     Dosage: 2 DOSAGE FORM
     Route: 048

REACTIONS (5)
  - Atrial fibrillation [Unknown]
  - Gait disturbance [Unknown]
  - Palpitations [Unknown]
  - Feeling abnormal [Unknown]
  - Dizziness [Unknown]
